FAERS Safety Report 14678120 (Version 1)
Quarter: 2018Q1

REPORT INFORMATION
  Report Type: Spontaneous
  Country: US (occurrence: US)
  Receive Date: 20180326
  Receipt Date: 20180326
  Transmission Date: 20180509
  Serious: No
  Sender: FDA-Public Use
  Company Number: US-BIOGEN-2018BI00546362

PATIENT
  Sex: Female

DRUGS (2)
  1. TYSABRI [Suspect]
     Active Substance: NATALIZUMAB
     Indication: MULTIPLE SCLEROSIS
     Route: 042
     Dates: start: 20160610, end: 20170717
  2. TYSABRI [Suspect]
     Active Substance: NATALIZUMAB
     Dates: start: 20120810, end: 20150513

REACTIONS (1)
  - Memory impairment [Not Recovered/Not Resolved]
